FAERS Safety Report 9847383 (Version 4)
Quarter: 2014Q2

REPORT INFORMATION
  Report Type: Spontaneous
  Country: US (occurrence: US)
  Receive Date: 20140127
  Receipt Date: 20140429
  Transmission Date: 20141212
  Serious: No
  Sender: FDA-Public Use
  Company Number: US-GILEAD-2014-0093146

PATIENT
  Sex: Male

DRUGS (3)
  1. LETAIRIS [Suspect]
     Indication: PULMONARY ARTERIAL HYPERTENSION
     Dosage: 10 MG, QD
     Route: 048
     Dates: start: 20130820
  2. ADCIRCA [Concomitant]
  3. TYVASO [Concomitant]

REACTIONS (3)
  - Cough [Unknown]
  - Hypersensitivity [Unknown]
  - Sinusitis [Unknown]
